FAERS Safety Report 8390374-1 (Version None)
Quarter: 2012Q1

REPORT INFORMATION
  Report Type: 
  Country: None (occurrence: None)
  Receive Date: 20120323
  Receipt Date: 20110323
  Transmission Date: 20120608
  Serious: Yes (Hospitalization)
  Sender: FDA-Public Use
  Company Number: 163-21880-11031302

PATIENT
  Age: 55 Year
  Sex: Male
  Weight: 65.7716 kg

DRUGS (3)
  1. REVLIMID [Suspect]
     Indication: MULTIPLE MYELOMA
     Dosage: 25 MG, 1 IN 1 D, PO 5 MG, 1 IN 1 D, PO 25 MG, 1 IN 1 D, PO 5 MG, 1 IN 1 D, PO
     Route: 048
     Dates: start: 20090901
  2. REVLIMID [Suspect]
     Indication: MULTIPLE MYELOMA
     Dosage: 25 MG, 1 IN 1 D, PO 5 MG, 1 IN 1 D, PO 25 MG, 1 IN 1 D, PO 5 MG, 1 IN 1 D, PO
     Route: 048
     Dates: start: 20110101
  3. REVLIMID [Suspect]
     Indication: MULTIPLE MYELOMA
     Dosage: 25 MG, 1 IN 1 D, PO 5 MG, 1 IN 1 D, PO 25 MG, 1 IN 1 D, PO 5 MG, 1 IN 1 D, PO
     Route: 048
     Dates: start: 20110201

REACTIONS (2)
  - THROMBOCYTOPENIA [None]
  - NEUTROPENIA [None]
